FAERS Safety Report 22822467 (Version 4)
Quarter: 2023Q4

REPORT INFORMATION
  Report Type: Spontaneous
  Country: US (occurrence: US)
  Receive Date: 20230815
  Receipt Date: 20231018
  Transmission Date: 20240109
  Serious: Yes (Other)
  Sender: FDA-Public Use
  Company Number: US-BRISTOL-MYERS SQUIBB COMPANY-2023-114129

PATIENT
  Age: 68 Year
  Sex: Female

DRUGS (3)
  1. LENALIDOMIDE [Suspect]
     Active Substance: LENALIDOMIDE
     Indication: Plasma cell myeloma
     Dosage: FREQUENCY: TAKE 1 CAPSULE BY MOUTH EVERY DAY FOR 21 DAYS THEN REST FOR 1 WEEK
     Route: 048
     Dates: start: 20230802
  2. LENALIDOMIDE [Suspect]
     Active Substance: LENALIDOMIDE
     Dosage: FREQUENCY: TAKE 1 CAPSULE BY MOUTH EVERY DAY FOR 21 DAYS THEN ?REST FOR 1 WEEK
     Route: 048
     Dates: start: 20230805
  3. LENALIDOMIDE [Suspect]
     Active Substance: LENALIDOMIDE
     Dosage: TAKE 1 CAPSULE BY MOUTH EVERY DAY FOR 21 DAYS
     Route: 048
     Dates: start: 20230801

REACTIONS (7)
  - Pruritus [Recovering/Resolving]
  - Fatigue [Unknown]
  - Ear pain [Not Recovered/Not Resolved]
  - Erythema [Recovering/Resolving]
  - Swelling face [Recovered/Resolved]
  - Ear pruritus [Unknown]
  - Blister [Unknown]

NARRATIVE: CASE EVENT DATE: 20230805
